FAERS Safety Report 7084584-3 (Version None)
Quarter: 2010Q4

REPORT INFORMATION
  Report Type: 
  Country: None (occurrence: None)
  Receive Date: 20101104
  Receipt Date: 20101029
  Transmission Date: 20110411
  Serious: Yes (Other)
  Sender: FDA-Public Use
  Company Number: BR-PFIZER INC-2010138483

PATIENT
  Age: 48 Year
  Sex: Female

DRUGS (4)
  1. LIPITOR [Suspect]
     Indication: BLOOD CHOLESTEROL INCREASED
     Dosage: 40 MG, 1X/DAY
     Route: 048
     Dates: start: 20090101
  2. LIPITOR [Suspect]
     Indication: BLOOD TRIGLYCERIDES INCREASED
  3. METFORMIN [Concomitant]
     Indication: DIABETES MELLITUS
     Dosage: UNK
     Dates: start: 20000101
  4. PREVEN EMERGENCY CONTRACEPTIVE KIT [Concomitant]

REACTIONS (10)
  - ANGINA PECTORIS [None]
  - ANXIETY [None]
  - BLOOD PRESSURE FLUCTUATION [None]
  - BLOOD TRIGLYCERIDES INCREASED [None]
  - CRYING [None]
  - GASTRITIS [None]
  - GASTROOESOPHAGEAL REFLUX DISEASE [None]
  - HEADACHE [None]
  - OESOPHAGITIS [None]
  - STRESS [None]
